FAERS Safety Report 9617077 (Version 3)
Quarter: 2013Q4

REPORT INFORMATION
  Report Type: Spontaneous
  Country: JP (occurrence: JP)
  Receive Date: 20131011
  Receipt Date: 20131125
  Transmission Date: 20140711
  Serious: Yes (Other)
  Sender: FDA-Public Use
  Company Number: JP-BAYER-2013-122479

PATIENT
  Age: 27 Year
  Sex: Male
  Weight: 50 kg

DRUGS (3)
  1. BETAFERON [Suspect]
     Indication: MULTIPLE SCLEROSIS
     Dosage: UNK
     Route: 058
     Dates: start: 201109, end: 201301
  2. FINGOLIMOD HYDROCHLORIDE [Concomitant]
     Dosage: UNK
     Route: 048
  3. RIVOTRIL [Concomitant]
     Dosage: DAILY DOSE 2 MG
     Route: 048
     Dates: start: 201109

REACTIONS (3)
  - Multiple sclerosis relapse [None]
  - Cardiac failure [Unknown]
  - Ejection fraction decreased [Unknown]
